FAERS Safety Report 6720330-8 (Version None)
Quarter: 2010Q2

REPORT INFORMATION
  Report Type: 
  Country: None (occurrence: None)
  Receive Date: 20100511
  Receipt Date: 20100503
  Transmission Date: 20101027
  Serious: Yes (Other)
  Sender: FDA-Public Use
  Company Number: GB-PFIZER INC-2010055255

PATIENT
  Age: 53 Year
  Sex: Female

DRUGS (4)
  1. AROMASIN [Suspect]
     Indication: BREAST CANCER
     Dosage: 25 MG, 1X/DAY
     Route: 048
     Dates: start: 20080318
  2. ILUBE [Concomitant]
     Dosage: 1 DF, 4X/DAY
     Route: 047
  3. TEMAZEPAM [Concomitant]
     Dosage: 10 MG, 1X/DAY
     Route: 048
  4. ZOLEDRONIC ACID [Concomitant]
     Dosage: UNK
     Dates: start: 20060101

REACTIONS (1)
  - MALIGNANT HYPERTENSION [None]
